FAERS Safety Report 7107453-9 (Version None)
Quarter: 2010Q4

REPORT INFORMATION
  Report Type: 
  Country: None (occurrence: None)
  Receive Date: 20101112
  Receipt Date: 20101104
  Transmission Date: 20110411
  Serious: Yes (Other)
  Sender: FDA-Public Use
  Company Number: 2010MA004285

PATIENT
  Age: 64 Year
  Sex: Female

DRUGS (1)
  1. GABAPENTIN [Suspect]
     Dosage: 600 MG

REACTIONS (5)
  - DIZZINESS [None]
  - NAUSEA [None]
  - PARAESTHESIA [None]
  - SOMNOLENCE [None]
  - THINKING ABNORMAL [None]
